FAERS Safety Report 8508401-7 (Version None)
Quarter: 2012Q2

REPORT INFORMATION
  Report Type: 
  Country: None (occurrence: None)
  Receive Date: 20120405
  Receipt Date: 20090403
  Transmission Date: 20120825
  Serious: Yes (Other)
  Sender: FDA-Public Use
  Company Number: PHEH2009US02340

PATIENT
  Age: 65 Year
  Sex: Female
  Weight: 71.7 kg

DRUGS (5)
  1. VYTORIN [Concomitant]
  2. OMEPRAZOLE [Concomitant]
  3. RECLAST [Suspect]
     Indication: OSTEOPOROSIS
     Dosage: 5MG/100ML ONCE A YEAR, INFUSION ; 5MG/100ML ONCE A YEAR, INFUSION
     Dates: start: 20090327, end: 20090327
  4. RECLAST [Suspect]
     Indication: OSTEOPOROSIS
     Dosage: 5MG/100ML ONCE A YEAR, INFUSION ; 5MG/100ML ONCE A YEAR, INFUSION
     Dates: start: 20090319, end: 20090319
  5. ALLEGRA [Concomitant]

REACTIONS (3)
  - PYREXIA [None]
  - FATIGUE [None]
  - BACK PAIN [None]
